FAERS Safety Report 9037095 (Version 1)
Quarter: 2013Q1

REPORT INFORMATION
  Report Type: Spontaneous
  Country: US (occurrence: None)
  Receive Date: 20130115
  Receipt Date: 20130115
  Transmission Date: 20140127
  Serious: Yes (Other)
  Sender: FDA-Public Use
  Company Number: 2012-8049

PATIENT
  Age: 38 Year
  Sex: Female

DRUGS (5)
  1. SOMATULINE DEPOT [Suspect]
     Indication: ACROMEGALY
     Dosage: (1 IN 28 D)
     Route: 058
     Dates: start: 20121026
  2. ATIVAN (LORAZEPAM) [Concomitant]
  3. IBUPROFEN (IBUPROFEN) [Concomitant]
  4. VICODIN (VICODIN) [Concomitant]
  5. TUMS (CALCIUM CARBONATE) [Concomitant]

REACTIONS (3)
  - Anaemia [None]
  - Breast calcifications [None]
  - Breast mass [None]
